FAERS Safety Report 6164565-4 (Version None)
Quarter: 2009Q2

REPORT INFORMATION
  Report Type: 
  Country: None (occurrence: None)
  Receive Date: 20090423
  Receipt Date: 20071120
  Transmission Date: 20091009
  Serious: Yes (Hospitalization, Other)
  Sender: FDA-Public Use
  Company Number: US-ASTRAZENECA-2007UW02037

PATIENT
  Age: 523 Month
  Sex: Male
  Weight: 130.2 kg

DRUGS (21)
  1. SEROQUEL [Suspect]
     Indication: BIPOLAR DISORDER
     Route: 048
     Dates: start: 20010101
  2. SEROQUEL [Suspect]
     Indication: SCHIZOPHRENIA
     Route: 048
     Dates: start: 20010101
  3. SEROQUEL [Suspect]
     Indication: POST-TRAUMATIC STRESS DISORDER
     Route: 048
     Dates: start: 20010101
  4. SEROQUEL [Suspect]
     Dosage: 25-1200MG
     Route: 048
     Dates: start: 20010123
  5. SEROQUEL [Suspect]
     Dosage: 25-1200MG
     Route: 048
     Dates: start: 20010123
  6. SEROQUEL [Suspect]
     Dosage: 25-1200MG
     Route: 048
     Dates: start: 20010123
  7. ZYPREXA [Concomitant]
     Dates: start: 19970101, end: 19990101
  8. ZOLOFT [Concomitant]
  9. LOTENSIN [Concomitant]
  10. HYDROCHLOROTHIAZIDE [Concomitant]
  11. GLUCOTROL [Concomitant]
  12. WELLBUTRIN [Concomitant]
  13. LOTREL [Concomitant]
  14. XANAX [Concomitant]
  15. KLONOPIN [Concomitant]
  16. ALBUTEROL [Concomitant]
  17. LEXAPRO [Concomitant]
  18. VISTARIL [Concomitant]
  19. AMBIEN [Concomitant]
  20. KEFLEX [Concomitant]
  21. TRAZODONE [Concomitant]

REACTIONS (40)
  - ABDOMINAL PAIN [None]
  - ADJUSTMENT DISORDER WITH DEPRESSED MOOD [None]
  - AFFECTIVE DISORDER [None]
  - ARTHRALGIA [None]
  - BACK PAIN [None]
  - BIPOLAR DISORDER [None]
  - BRONCHITIS [None]
  - CEREBRAL INFARCTION [None]
  - CHEST PAIN [None]
  - CONSTIPATION [None]
  - DEPRESSION [None]
  - DIVERTICULUM INTESTINAL [None]
  - DYSPNOEA [None]
  - EPIDIDYMITIS [None]
  - FALL [None]
  - HYPERGLYCAEMIA [None]
  - HYPERTROPHIC CARDIOMYOPATHY [None]
  - HYPOAESTHESIA [None]
  - INFECTION [None]
  - LEUKOCYTOSIS [None]
  - MAJOR DEPRESSION [None]
  - MUSCULOSKELETAL PAIN [None]
  - NAUSEA [None]
  - NECK PAIN [None]
  - OEDEMA PERIPHERAL [None]
  - OSTEOARTHRITIS [None]
  - PAIN IN EXTREMITY [None]
  - PERICARDITIS [None]
  - PLEURISY [None]
  - PROSTATE INFECTION [None]
  - PSEUDOMEMBRANOUS COLITIS [None]
  - PYREXIA [None]
  - RECTAL HAEMORRHAGE [None]
  - REMOVAL OF FOREIGN BODY FROM GASTROINTESTINAL TRACT [None]
  - SUBSTANCE ABUSE [None]
  - SUICIDE ATTEMPT [None]
  - TYPE 2 DIABETES MELLITUS [None]
  - URINARY INCONTINENCE [None]
  - URINARY TRACT INFECTION [None]
  - VERTIGO [None]
